FAERS Safety Report 5907086-3 (Version None)
Quarter: 2008Q4

REPORT INFORMATION
  Report Type: 
  Country: None (occurrence: None)
  Receive Date: 20081003
  Receipt Date: 20080923
  Transmission Date: 20090506
  Serious: Yes (Hospitalization, Other)
  Sender: FDA-Public Use
  Company Number: CA-JNJFOC-20080703674

PATIENT
  Age: 43 Year
  Sex: Male
  Weight: 104.5 kg

DRUGS (9)
  1. REMICADE [Suspect]
     Dosage: 2ND DOSE
     Route: 042
  2. REMICADE [Suspect]
     Indication: ANKYLOSING SPONDYLITIS
     Route: 042
  3. LITHIUM [Concomitant]
  4. CELEXA [Concomitant]
  5. EPIVAL [Concomitant]
  6. OLANZAPINE [Concomitant]
  7. RABEPRAZOLE SODIUM [Concomitant]
  8. NAPROXEN [Concomitant]
  9. IBUPROFEN [Concomitant]

REACTIONS (2)
  - BRONCHITIS [None]
  - ENDOCARDITIS [None]
